FAERS Safety Report 15596185 (Version 2)
Quarter: 2018Q4

REPORT INFORMATION
  Report Type: Spontaneous
  Country: BR (occurrence: BR)
  Receive Date: 20181108
  Receipt Date: 20181115
  Transmission Date: 20190205
  Serious: Yes (Hospitalization, Other)
  Sender: FDA-Public Use
  Company Number: BR-PFIZER INC-2018451688

PATIENT
  Age: 82 Year
  Sex: Female

DRUGS (7)
  1. LORAX [Suspect]
     Active Substance: LORAZEPAM
     Indication: INSOMNIA
     Dosage: 2 MG, 2X/DAY (1 TABLET AT 6:00 P.M. AND ANOTHER AT 10:00 P.M)
     Dates: start: 2011
  2. PURAN [Concomitant]
     Active Substance: LEVOTHYROXINE SODIUM
     Indication: THYROID DISORDER
     Dosage: UNK
  3. ANCORON [Concomitant]
     Active Substance: AMIODARONE HYDROCHLORIDE
     Indication: ARRHYTHMIA
     Dosage: UNK
     Dates: start: 2010
  4. VONAU [Concomitant]
     Active Substance: ONDANSETRON HYDROCHLORIDE
     Indication: NAUSEA
     Dosage: UNK
  5. MECLIN [Concomitant]
     Indication: NAUSEA
     Dosage: UNK
  6. PERIDAL [DOMPERIDONE] [Concomitant]
     Indication: ABDOMINAL PAIN UPPER
     Dosage: UNK
  7. DRAMAMINE [Concomitant]
     Active Substance: DIMENHYDRINATE
     Indication: NAUSEA
     Dosage: UNK

REACTIONS (9)
  - Restless legs syndrome [Not Recovered/Not Resolved]
  - Syncope [Recovered/Resolved]
  - Eye movement disorder [Not Recovered/Not Resolved]
  - Facial asymmetry [Not Recovered/Not Resolved]
  - Cellulitis [Recovered/Resolved]
  - Urinary incontinence [Recovered/Resolved]
  - Dementia [Not Recovered/Not Resolved]
  - Disease recurrence [Recovered/Resolved]
  - Brain neoplasm [Not Recovered/Not Resolved]

NARRATIVE: CASE EVENT DATE: 2012
